FAERS Safety Report 19417461 (Version 1)
Quarter: 2021Q2

REPORT INFORMATION
  Report Type: Report from Study
  Country: US (occurrence: US)
  Receive Date: 20210615
  Receipt Date: 20210615
  Transmission Date: 20210717
  Serious: Yes (Hospitalization, Other)
  Sender: FDA-Public Use
  Company Number: US-GILEAD-2021-0535565

PATIENT
  Age: 57 Year
  Sex: Male

DRUGS (6)
  1. GABAPENTIN. [Concomitant]
     Active Substance: GABAPENTIN
  2. JARDIANCE [Concomitant]
     Active Substance: EMPAGLIFLOZIN
  3. LISINOPRIL. [Concomitant]
     Active Substance: LISINOPRIL
  4. SOFOSBUVIR W/VELPATASVIR [Suspect]
     Active Substance: SOFOSBUVIR\VELPATASVIR
     Indication: HEPATITIS C
     Dosage: UNK UNK, QD
     Route: 048
     Dates: start: 20201102, end: 20210125
  5. TRULICITY [Concomitant]
     Active Substance: DULAGLUTIDE
  6. PRAVASTATIN. [Concomitant]
     Active Substance: PRAVASTATIN

REACTIONS (3)
  - Headache [Recovered/Resolved]
  - Vascular graft [Unknown]
  - Aneurysm repair [Unknown]

NARRATIVE: CASE EVENT DATE: 202011
